FAERS Safety Report 19997555 (Version 1)
Quarter: 2021Q4

REPORT INFORMATION
  Report Type: Spontaneous
  Country: US (occurrence: US)
  Receive Date: 20211026
  Receipt Date: 20211026
  Transmission Date: 20220304
  Serious: Yes (Other)
  Sender: FDA-Public Use
  Company Number: US-TEVA-2021-US-1968434

PATIENT
  Age: 57 Year
  Sex: Male

DRUGS (2)
  1. MUPIROCIN [Suspect]
     Active Substance: MUPIROCIN
     Indication: Infection prophylaxis
     Dosage: THREE TIMES A DAY ON THE WOUND
     Route: 061
     Dates: start: 20211015
  2. MUPIROCIN [Suspect]
     Active Substance: MUPIROCIN
     Dosage: THREE TIMES A DAY ON THE WOUND
     Route: 061
     Dates: start: 20211016

REACTIONS (2)
  - Haematochezia [Unknown]
  - Product use in unapproved indication [Unknown]

NARRATIVE: CASE EVENT DATE: 20211015
